FAERS Safety Report 5330200-8 (Version None)
Quarter: 2007Q2

REPORT INFORMATION
  Report Type: 
  Country: None (occurrence: None)
  Receive Date: 20070515
  Receipt Date: 20070430
  Transmission Date: 20071010
  Serious: Yes (Hospitalization)
  Sender: FDA-Public Use
  Company Number: 2007000781

PATIENT
  Age: 80 Year
  Sex: Female

DRUGS (7)
  1. TARCEVA [Suspect]
     Indication: NON-SMALL CELL LUNG CANCER
     Dosage: 150 MG (QD), ORAL
     Route: 048
     Dates: start: 20060701
  2. ZOCOR [Concomitant]
  3. NEXIUM [Concomitant]
  4. ZOLOFT [Concomitant]
  5. CALCIUM (CALCIUM) [Concomitant]
  6. MULTI-VITAMIN [Concomitant]
  7. ACETAMINOPHEN [Concomitant]

REACTIONS (3)
  - BLOOD URINE PRESENT [None]
  - CATHETER THROMBOSIS [None]
  - INFECTION [None]
